FAERS Safety Report 20062132 (Version 2)
Quarter: 2021Q4

REPORT INFORMATION
  Report Type: Spontaneous
  Country: JP (occurrence: JP)
  Receive Date: 20211112
  Receipt Date: 20211122
  Transmission Date: 20220303
  Serious: Yes (Hospitalization)
  Sender: FDA-Public Use
  Company Number: JP-GLAXOSMITHKLINE-JP2021JPN230281

PATIENT
  Age: 81 Year
  Sex: Female
  Weight: 40 kg

DRUGS (3)
  1. VALTREX [Suspect]
     Active Substance: VALACYCLOVIR HYDROCHLORIDE
     Indication: Herpes zoster
     Dosage: 1000 MG, TID
  2. LOXOPROFEN SODIUM HYDRATE TABLET [Concomitant]
     Indication: Herpes zoster
     Dosage: 60 MG, TID
  3. GENTACIN OINTMENT [Concomitant]
     Indication: Herpes zoster
     Dosage: UNK

REACTIONS (3)
  - Nausea [Unknown]
  - Balance disorder [Unknown]
  - Therapy cessation [Unknown]
